FAERS Safety Report 7372729-7 (Version None)
Quarter: 2011Q1

REPORT INFORMATION
  Report Type: 
  Country: None (occurrence: None)
  Receive Date: 20110324
  Receipt Date: 20110310
  Transmission Date: 20110831
  Serious: Yes (Other)
  Sender: FDA-Public Use
  Company Number: PHHY2011GB19488

PATIENT
  Age: 73 Year
  Sex: Female

DRUGS (6)
  1. VALSARTAN [Concomitant]
     Dosage: UNK
  2. ARTHROTEC [Concomitant]
     Dosage: UNK
  3. INDAPAMIDE [Suspect]
     Dosage: 125 UG, UNK
  4. ATENOLOL [Concomitant]
     Dosage: UNK
  5. LEVOTHYROXINE SODIUM [Concomitant]
     Indication: HYPOTHYROIDISM
     Dosage: 125 UG, UNK
  6. LACIDIPINE [Concomitant]
     Dosage: UNK

REACTIONS (9)
  - HYPOPHOSPHATAEMIA [None]
  - MYOPATHY [None]
  - VITAMIN D DEFICIENCY [None]
  - MUSCULAR WEAKNESS [None]
  - BLOOD CREATINE PHOSPHOKINASE INCREASED [None]
  - MUSCLE ATROPHY [None]
  - HYPERCALCAEMIA [None]
  - CREATININE RENAL CLEARANCE DECREASED [None]
  - INCLUSION BODY MYOSITIS [None]
